FAERS Safety Report 5031267-7 (Version None)
Quarter: 2006Q2

REPORT INFORMATION
  Report Type: 
  Country: None (occurrence: None)
  Receive Date: 20060619
  Receipt Date: 20060619
  Transmission Date: 20061013
  Serious: Yes (Other)
  Sender: FDA-Public Use
  Company Number: None

PATIENT
  Age: 49 Year
  Sex: Female
  Weight: 48.9885 kg

DRUGS (1)
  1. BOTOX [Suspect]
     Indication: SKIN WRINKLING
     Dates: start: 20060613, end: 20060617

REACTIONS (4)
  - AMNESIA [None]
  - DISORIENTATION [None]
  - HEADACHE [None]
  - OPHTHALMOPLEGIA [None]
